FAERS Safety Report 5757636-5 (Version None)
Quarter: 2008Q2

REPORT INFORMATION
  Report Type: 
  Country: None (occurrence: None)
  Receive Date: 20080529
  Receipt Date: 20080521
  Transmission Date: 20081010
  Serious: Yes (Other)
  Sender: FDA-Public Use
  Company Number: 2008013450

PATIENT
  Age: 62 Year
  Sex: Male

DRUGS (4)
  1. CETIRIZINE HCL [Suspect]
     Dosage: ORAL
     Route: 048
  2. ROBITUSSIN ^ROBINS^ (GUAIFENESIN) [Suspect]
     Dosage: ORAL
     Route: 048
  3. ASPIRIN (ACETYSLICYLIC ACID) [Concomitant]
     Dosage: ORAL
     Route: 048
  4. VOLTAREN [Suspect]

REACTIONS (4)
  - BRONCHOSPASM [None]
  - DERMATITIS EXFOLIATIVE [None]
  - ERYTHEMA MULTIFORME [None]
  - PRURITUS [None]
